FAERS Safety Report 9617393 (Version 2)
Quarter: 2013Q4

REPORT INFORMATION
  Report Type: Report from Study
  Country: CA (occurrence: CA)
  Receive Date: 20131011
  Receipt Date: 20131011
  Transmission Date: 20140711
  Serious: Yes (Other)
  Sender: FDA-Public Use
  Company Number: CA-JNJFOC-20130503084

PATIENT
  Age: 46 Year
  Sex: Female
  Weight: 90.7 kg

DRUGS (4)
  1. REMICADE [Suspect]
     Indication: CROHN^S DISEASE
     Dosage: 5 MG/KG
     Route: 042
     Dates: start: 20110729
  2. REMICADE [Suspect]
     Indication: ANKYLOSING SPONDYLITIS
     Dosage: 5 MG/KG
     Route: 042
     Dates: start: 20110729
  3. SYSTANE ULTRA [Concomitant]
     Dosage: 1 DROP
     Route: 047
  4. FLUOROMETHOLONE [Concomitant]
     Dosage: 1 DROP
     Route: 047

REACTIONS (2)
  - Uveitis [Recovering/Resolving]
  - Plantar fasciitis [Recovering/Resolving]
